FAERS Safety Report 18042893 (Version 1)
Quarter: 2020Q3

REPORT INFORMATION
  Report Type: Spontaneous
  Country: US (occurrence: US)
  Receive Date: 20200719
  Receipt Date: 20200719
  Transmission Date: 20201103
  Serious: Yes (Other)
  Sender: FDA-Public Use
  Company Number: None

PATIENT
  Age: 40 Year
  Sex: Male
  Weight: 88.5 kg

DRUGS (7)
  1. CEFTRIAXONE 1G Q24H [Concomitant]
     Dates: start: 20200718
  2. DEXTROMETHORPHAN?GUAIFENESIN (ROBITUSSIN?DM) 10?100 MG/5 ML LIQUID 5 M [Concomitant]
     Dates: start: 20200718
  3. REMDESIVIR (EUA) 100 MG IN SODIUM CHLORIDE 0.9 % 250 ML IVPB [Suspect]
     Active Substance: REMDESIVIR
     Indication: COVID-19
     Route: 041
     Dates: start: 20200718, end: 20200719
  4. HEPARIN 5000 UNITS SUBQ BID [Concomitant]
     Dates: start: 20200718
  5. ACETAMINOPHEN 1000 MG Q8H [Concomitant]
     Dates: start: 20200718
  6. SENNA 17.2 MG [Concomitant]
     Dates: start: 20200718, end: 20200718
  7. DOXYCYCLINE 100 MG BID [Concomitant]
     Dates: start: 20200718

REACTIONS (4)
  - Lacrimation increased [None]
  - Dyspnoea [None]
  - Eye irritation [None]
  - Photophobia [None]

NARRATIVE: CASE EVENT DATE: 20200719
